FAERS Safety Report 6335359-1 (Version None)
Quarter: 2009Q3

REPORT INFORMATION
  Report Type: 
  Country: None (occurrence: None)
  Receive Date: 20090831
  Receipt Date: 20090819
  Transmission Date: 20100115
  Serious: Yes (Other)
  Sender: FDA-Public Use
  Company Number: US-ELI_LILLY_AND_COMPANY-US200908004423

PATIENT
  Sex: Female

DRUGS (3)
  1. CYMBALTA [Suspect]
     Indication: PAIN
     Dosage: 20 MG, DAILY (1/D)
     Dates: start: 20050101, end: 20050101
  2. CYMBALTA [Suspect]
     Dosage: 30 MG, DAILY (1/D)
     Dates: start: 20090814
  3. CYMBALTA [Suspect]
     Dosage: 60 MG, DAILY (1/D)

REACTIONS (3)
  - MEDICATION ERROR [None]
  - OFF LABEL USE [None]
  - SURGERY [None]
